FAERS Safety Report 16095170 (Version 1)
Quarter: 2019Q1

REPORT INFORMATION
  Report Type: Spontaneous
  Country: CN (occurrence: CN)
  Receive Date: 20190320
  Receipt Date: 20190320
  Transmission Date: 20190418
  Serious: Yes (Hospitalization, Other)
  Sender: FDA-Public Use
  Company Number: CN-BAYER-2018-090738

PATIENT
  Age: 34 Year
  Sex: Female

DRUGS (5)
  1. ISONIAZID. [Concomitant]
     Active Substance: ISONIAZID
     Indication: TUBERCULOSIS GASTROINTESTINAL
     Dosage: UNK
     Dates: start: 20171215, end: 20180222
  2. MAGNEVIST [Suspect]
     Active Substance: GADOPENTETATE DIMEGLUMINE
     Indication: NUCLEAR MAGNETIC RESONANCE IMAGING
     Dosage: 15 ML, ONCE
     Route: 042
     Dates: start: 20171201, end: 20171201
  3. LEVOFLOXACIN. [Concomitant]
     Active Substance: LEVOFLOXACIN
     Dosage: UNK
     Dates: start: 20171215, end: 20180222
  4. RIFAMPICIN [Concomitant]
     Active Substance: RIFAMPIN
     Dosage: UNK
     Dates: start: 20171215, end: 20180222
  5. ETHAMBUTOL [Concomitant]
     Active Substance: ETHAMBUTOL HYDROCHLORIDE
     Dosage: UNK
     Dates: start: 20171215, end: 20180222

REACTIONS (23)
  - Hypoaesthesia oral [None]
  - Food aversion [None]
  - Depression [None]
  - Weight decreased [None]
  - Discomfort [None]
  - Hypoaesthesia [None]
  - Musculoskeletal discomfort [Not Recovered/Not Resolved]
  - Anxiety [None]
  - Abdominal discomfort [None]
  - Contrast media reaction [None]
  - Insomnia [None]
  - Nontherapeutic agent urine positive [None]
  - Memory impairment [None]
  - Decreased appetite [None]
  - Hyperhidrosis [None]
  - Head discomfort [Not Recovered/Not Resolved]
  - Burning sensation [None]
  - Fatigue [None]
  - Vertigo [None]
  - Tremor [None]
  - Muscle tightness [Not Recovered/Not Resolved]
  - Muscular weakness [None]
  - Headache [Not Recovered/Not Resolved]

NARRATIVE: CASE EVENT DATE: 201712
